FAERS Safety Report 5925252-8 (Version None)
Quarter: 2008Q4

REPORT INFORMATION
  Report Type: 
  Country: None (occurrence: None)
  Receive Date: 20081020
  Receipt Date: 20081020
  Transmission Date: 20090506
  Serious: Yes (Death)
  Sender: FDA-Public Use
  Company Number: None

PATIENT
  Sex: Male

DRUGS (3)
  1. PAXIL [Suspect]
     Indication: ANXIETY
     Dosage: 1DAILY PO
     Route: 048
     Dates: start: 20071122, end: 20080124
  2. PAXIL [Suspect]
     Indication: DEPRESSION
     Dosage: 1DAILY PO
     Route: 048
     Dates: start: 20071122, end: 20080124
  3. SINEMET [Suspect]
     Indication: PARKINSON'S DISEASE
     Dosage: PO
     Route: 048
     Dates: start: 20080124, end: 20080228

REACTIONS (1)
  - GUN SHOT WOUND [None]
